FAERS Safety Report 5013668-6 (Version None)
Quarter: 2006Q2

REPORT INFORMATION
  Report Type: 
  Country: None (occurrence: None)
  Receive Date: 20060530
  Receipt Date: 20060522
  Transmission Date: 20061013
  Serious: Yes (Hospitalization)
  Sender: FDA-Public Use
  Company Number: NZ-GLAXOSMITHKLINE-B0425487A

PATIENT
  Age: 56 Year
  Sex: Male

DRUGS (2)
  1. MALARONE [Suspect]
     Route: 048
     Dates: start: 20051212
  2. AMOXYCILLIN [Concomitant]

REACTIONS (2)
  - RASH [None]
  - SERUM SICKNESS [None]
